FAERS Safety Report 9555094 (Version 1)
Quarter: 2013Q3

REPORT INFORMATION
  Report Type: Spontaneous
  Country: GB (occurrence: None)
  Receive Date: 20130906
  Receipt Date: 20130906
  Transmission Date: 20140515
  Serious: Yes (Other)
  Sender: FDA-Public Use
  Company Number: E2B_0000722

PATIENT
  Age: 64 Year
  Sex: Female

DRUGS (4)
  1. SIMVASTATIN [Suspect]
     Indication: BLOOD CHOLESTEROL INCREASED
     Dosage: UNKNOWN (20 MG, UNKNOWN), ORAL
     Route: 048
     Dates: start: 2009
  2. AMLODIPINE [Suspect]
     Indication: PRODUCT USED FOR UNKNOWN INDICATION
     Dosage: UNKNOWN (10 MG, UNKNOWN), ORAL
     Route: 048
  3. RAMIPRIL (UNKNOWN) (RAMIPRIL) [Concomitant]
  4. ATORVASTATIN (20 MILLIGRAM, UNKNOWN) [Concomitant]

REACTIONS (17)
  - Drug interaction [None]
  - Nasopharyngitis [None]
  - Diarrhoea [None]
  - Hepatic steatosis [None]
  - Malaise [None]
  - Infection [None]
  - Hepatomegaly [None]
  - Muscle spasms [None]
  - Erythema [None]
  - Speech disorder [None]
  - Local swelling [None]
  - Swollen tongue [None]
  - Paraesthesia [None]
  - Abasia [None]
  - Weight increased [None]
  - Blood urine present [None]
  - Hypersensitivity [None]
